FAERS Safety Report 7207601-6 (Version None)
Quarter: 2011Q1

REPORT INFORMATION
  Report Type: 
  Country: None (occurrence: None)
  Receive Date: 20110103
  Receipt Date: 20101222
  Transmission Date: 20110831
  Serious: Yes (Hospitalization, Other)
  Sender: FDA-Public Use
  Company Number: US-ELI_LILLY_AND_COMPANY-US201009004379

PATIENT
  Sex: Female
  Weight: 102.4 kg

DRUGS (19)
  1. BYETTA [Suspect]
     Indication: INSULIN RESISTANCE
     Dosage: 5 UG, UNKNOWN
     Route: 058
  2. VENTOLIN [Concomitant]
     Indication: ASTHMA
     Dosage: UNK, AS NEEDED
  3. SINGULAIR [Concomitant]
     Indication: ASTHMA
     Dosage: 10 MG, DAILY (1/D)
  4. XOLAIR [Concomitant]
     Indication: ASTHMA
     Dosage: UNK, MONTHLY (1/M)
  5. ADVAIR [Concomitant]
     Indication: ASTHMA
     Dosage: UNK, 2/D
     Route: 055
  6. FLUTICASONE PROPIONATE [Concomitant]
     Dosage: UNK, 2/D
  7. BYETTA [Suspect]
     Dosage: 10 UG, UNKNOWN
     Route: 058
  8. KLOR-CON [Concomitant]
     Indication: ELECTROLYTE SUBSTITUTION THERAPY
     Dosage: 40 MEQ, 2/D
  9. EFFEXOR [Concomitant]
     Dosage: 150 MG, DAILY (1/D)
  10. BYETTA [Suspect]
     Dosage: 5 UG, 2/D
     Route: 058
     Dates: end: 20100905
  11. CLONIDINE [Concomitant]
     Indication: HYPERTENSION
     Dosage: 0.1 MG, 2/D
  12. VENLAFAXINE [Concomitant]
     Indication: DEPRESSION
     Dosage: 150 MG, DAILY (1/D)
  13. BENICAR HCT [Concomitant]
     Indication: HYPERTENSION
     Dosage: 12.5 MG, DAILY (1/D)
     Route: 048
  14. CRESTOR [Concomitant]
     Indication: BLOOD CHOLESTEROL INCREASED
     Dosage: 10 MG, DAILY (1/D)
  15. FLONASE [Concomitant]
     Indication: SINUS CONGESTION
     Dosage: UNK, 2/D
     Route: 045
  16. AZELASTINE HCL [Concomitant]
     Indication: NASAL CONGESTION
     Dosage: 274 UG, 2/D
     Route: 045
  17. THEOPHYLLINE [Concomitant]
     Indication: ASTHMA
     Dosage: 400 MG, 2/D
  18. ADDERALL 10 [Concomitant]
     Dosage: 15 MG, AS NEEDED
  19. POTASSIUM [Concomitant]
     Dosage: 40 MEQ, 2/D

REACTIONS (10)
  - BLOOD GLUCOSE DECREASED [None]
  - VISION BLURRED [None]
  - NAUSEA [None]
  - THYROID CYST [None]
  - HYPOGLYCAEMIC SEIZURE [None]
  - HYPOGLYCAEMIC UNCONSCIOUSNESS [None]
  - ROAD TRAFFIC ACCIDENT [None]
  - CONTUSION [None]
  - HYPERHIDROSIS [None]
  - ASTHENIA [None]
